FAERS Safety Report 6959545-2 (Version None)
Quarter: 2010Q3

REPORT INFORMATION
  Report Type: 
  Country: None (occurrence: None)
  Receive Date: 20100827
  Receipt Date: 20100819
  Transmission Date: 20110219
  Serious: Yes (Death, Congenital Anomaly)
  Sender: FDA-Public Use
  Company Number: 017512

PATIENT

DRUGS (1)
  1. KEPPRA [Suspect]
     Dosage: 1000 MG TRANSPLACENTAL
     Route: 064

REACTIONS (7)
  - ABDOMINAL WALL ANOMALY [None]
  - ABORTION INDUCED [None]
  - FOETAL MALFORMATION [None]
  - LIMB DEFORMITY [None]
  - MATERNAL DRUGS AFFECTING FOETUS [None]
  - SPINAL DEFORMITY [None]
  - UMBILICAL CORD SHORT [None]
